FAERS Safety Report 9096748 (Version 3)
Quarter: 2013Q2

REPORT INFORMATION
  Report Type: Spontaneous
  Country: US (occurrence: US)
  Receive Date: 20130211
  Receipt Date: 20130426
  Transmission Date: 20140414
  Serious: Yes (Other)
  Sender: FDA-Public Use
  Company Number: US-PFIZER INC-2013049641

PATIENT
  Age: 72 Year
  Sex: Male
  Weight: 86.17 kg

DRUGS (4)
  1. VIAGRA [Suspect]
     Indication: ERECTILE DYSFUNCTION
     Dosage: 100 MG, AS NEEDED
     Route: 048
  2. ZETIA [Concomitant]
     Dosage: UNK
  3. ASPIRIN [Concomitant]
     Dosage: UNK
  4. COZAAR [Concomitant]
     Dosage: UNK

REACTIONS (2)
  - Hearing impaired [Unknown]
  - Drug ineffective [Unknown]
